FAERS Safety Report 9624015 (Version 4)
Quarter: 2013Q4

REPORT INFORMATION
  Report Type: Spontaneous
  Country: JP (occurrence: None)
  Receive Date: 20131010
  Receipt Date: 20131204
  Transmission Date: 20140711
  Serious: Yes (Hospitalization)
  Sender: FDA-Public Use
  Company Number: 2013-003145

PATIENT
  Age: 83 Year
  Sex: Female

DRUGS (1)
  1. ACTONEL [Suspect]
     Indication: OSTEOPOROSIS
     Dosage: ONCE WEEKLY
     Route: 048
     Dates: start: 201005, end: 201111

REACTIONS (4)
  - Atypical femur fracture [None]
  - Bone disorder [None]
  - Fall [None]
  - Osteoporosis [None]
